FAERS Safety Report 9388825 (Version 1)
Quarter: 2013Q3

REPORT INFORMATION
  Report Type: Spontaneous
  Country: JP (occurrence: JP)
  Receive Date: 20130708
  Receipt Date: 20130708
  Transmission Date: 20140515
  Serious: Yes (Hospitalization)
  Sender: FDA-Public Use
  Company Number: JP-BRACCO-007160

PATIENT
  Age: 64 Year
  Sex: Male
  Weight: 65 kg

DRUGS (4)
  1. IOPAMIRON [Suspect]
     Indication: ANGIOGRAM
     Dosage: 1.8 ML/SEC
     Route: 013
     Dates: start: 20130607, end: 20130607
  2. URSO [Concomitant]
  3. POLARAMINE [Concomitant]
     Dates: start: 20130607
  4. XYLOCAINE [Suspect]
     Indication: DIAGNOSTIC PROCEDURE
     Route: 058
     Dates: start: 20130607, end: 20130607

REACTIONS (1)
  - Anaphylactic shock [Recovered/Resolved]
